FAERS Safety Report 8318642-X (Version None)
Quarter: 2012Q2

REPORT INFORMATION
  Report Type: 
  Country: None (occurrence: None)
  Receive Date: 20120426
  Receipt Date: 20120426
  Transmission Date: 20120825
  Serious: Yes (Other)
  Sender: FDA-Public Use
  Company Number: None

PATIENT
  Sex: Male
  Weight: 72.7 kg

DRUGS (2)
  1. TRUSOPT [Suspect]
     Indication: OPEN ANGLE GLAUCOMA
     Dosage: 1 GTT BID OU DAILY EYES
     Dates: start: 20111114, end: 20120320
  2. TRUSOPT [Suspect]

REACTIONS (2)
  - ANGIOEDEMA [None]
  - EYELID MARGIN CRUSTING [None]
